FAERS Safety Report 13347752 (Version 1)
Quarter: 2017Q1

REPORT INFORMATION
  Report Type: Spontaneous
  Country: DE (occurrence: DE)
  Receive Date: 20170317
  Receipt Date: 20170317
  Transmission Date: 20170428
  Serious: Yes (Other)
  Sender: FDA-Public Use
  Company Number: DE-BAUSCH-BL-2017-007128

PATIENT
  Sex: Female

DRUGS (2)
  1. TIMO EDO 0.5% [Suspect]
     Active Substance: TIMOLOL MALEATE
     Route: 065
     Dates: start: 201701
  2. TIMO EDO 0.5% [Suspect]
     Active Substance: TIMOLOL MALEATE
     Indication: GLAUCOMA
     Route: 065
     Dates: start: 2016

REACTIONS (1)
  - Glaucoma [Not Recovered/Not Resolved]
